FAERS Safety Report 25667438 (Version 1)
Quarter: 2025Q3

REPORT INFORMATION
  Report Type: Spontaneous
  Country: JP (occurrence: JP)
  Receive Date: 20250811
  Receipt Date: 20250811
  Transmission Date: 20251021
  Serious: Yes (Hospitalization)
  Sender: NOVO NORDISK
  Company Number: JP-NOVOPROD-1445028

PATIENT
  Age: 23 Year
  Sex: Female
  Weight: 90 kg

DRUGS (3)
  1. NOVORAPID [Suspect]
     Active Substance: INSULIN ASPART
     Indication: Gestational diabetes
     Dosage: 50 IU, QD
     Route: 058
     Dates: start: 20240312
  2. NOVORAPID [Suspect]
     Active Substance: INSULIN ASPART
     Dosage: 6 IU, TID( 6 UNITS AS A DOSE BEFORE EACH MEAL)
     Route: 058
     Dates: start: 2024
  3. NOVORAPID [Suspect]
     Active Substance: INSULIN ASPART
     Dosage: 78 IU, TID(78 UNITS AS A DOSE BEFORE EACH MEAL)
     Route: 058

REACTIONS (3)
  - Hypoglycaemia [Recovered/Resolved]
  - Threatened labour [Unknown]
  - Maternal exposure during pregnancy [Recovered/Resolved]

NARRATIVE: CASE EVENT DATE: 20240312
